FAERS Safety Report 15072646 (Version 1)
Quarter: 2018Q2

REPORT INFORMATION
  Report Type: Spontaneous
  Country: US (occurrence: US)
  Receive Date: 20180627
  Receipt Date: 20180627
  Transmission Date: 20180711
  Serious: Yes (Other)
  Sender: FDA-Public Use
  Company Number: US-ABBVIE-18K-163-2400015-00

PATIENT
  Age: 29 Year
  Sex: Female

DRUGS (1)
  1. HUMIRA [Suspect]
     Active Substance: ADALIMUMAB
     Indication: EXPOSURE VIA BODY FLUID
     Route: 050

REACTIONS (5)
  - Live birth [Unknown]
  - Paternal drugs affecting foetus [Unknown]
  - Premature delivery [Unknown]
  - Exposure during pregnancy [Unknown]
  - Polyhydramnios [Unknown]

NARRATIVE: CASE EVENT DATE: 2017
